FAERS Safety Report 19174493 (Version 1)
Quarter: 2021Q2

REPORT INFORMATION
  Report Type: Spontaneous
  Country: US (occurrence: US)
  Receive Date: 20210423
  Receipt Date: 20210423
  Transmission Date: 20210717
  Serious: Yes (Death, Life-Threatening, Hospitalization, Other)
  Sender: FDA-Public Use
  Company Number: US-ORION CORPORATION ORION PHARMA-21_00014039

PATIENT
  Age: 46 Year
  Sex: Male

DRUGS (1)
  1. METHOTREXATE. [Suspect]
     Active Substance: METHOTREXATE
     Indication: DERMATOMYOSITIS
     Route: 065

REACTIONS (8)
  - Encephalitis brain stem [Fatal]
  - Hemiparesis [Fatal]
  - Hydrocephalus [Fatal]
  - Facial paralysis [Fatal]
  - Respiratory failure [Fatal]
  - Listeriosis [Fatal]
  - Brain stem haemorrhage [Fatal]
  - Product use in unapproved indication [Unknown]
